FAERS Safety Report 6935733-6 (Version None)
Quarter: 2010Q3

REPORT INFORMATION
  Report Type: 
  Country: None (occurrence: None)
  Receive Date: 20100816
  Receipt Date: 20090701
  Transmission Date: 20110219
  Serious: No
  Sender: FDA-Public Use
  Company Number: 2009-00308

PATIENT
  Age: 54 Year
  Sex: Male
  Weight: 88.4514 kg

DRUGS (1)
  1. ZICAM NASAL PRODUCTS [Suspect]

REACTIONS (1)
  - ANOSMIA [None]
